FAERS Safety Report 24405412 (Version 1)
Quarter: 2024Q4

REPORT INFORMATION
  Report Type: Spontaneous
  Country: EU (occurrence: EU)
  Receive Date: 20241007
  Receipt Date: 20241007
  Transmission Date: 20250115
  Serious: Yes (Other)
  Sender: SEPTODONT
  Company Number: None

PATIENT

DRUGS (1)
  1. ARTICAINE\EPINEPHRINE [Suspect]
     Active Substance: ARTICAINE\EPINEPHRINE
     Indication: Anaesthesia procedure
     Dosage: 2 AMPULLES
     Route: 058
     Dates: start: 20231122, end: 20231122

REACTIONS (5)
  - Skin warm [Recovered/Resolved]
  - Hyperventilation [Recovered/Resolved]
  - Erythema [Recovered/Resolved]
  - Paraesthesia [Recovered/Resolved]
  - Blood pressure increased [Recovered/Resolved]

NARRATIVE: CASE EVENT DATE: 20231122
